FAERS Safety Report 18551945 (Version 1)
Quarter: 2020Q4

REPORT INFORMATION
  Report Type: Spontaneous
  Country: US (occurrence: US)
  Receive Date: 20201126
  Receipt Date: 20201126
  Transmission Date: 20210114
  Serious: Yes (Other)
  Sender: FDA-Public Use
  Company Number: US-009507513-2011USA010959

PATIENT
  Age: 80 Year
  Sex: Female

DRUGS (4)
  1. TIZANIDINE HYDROCHLORIDE. [Suspect]
     Active Substance: TIZANIDINE HYDROCHLORIDE
     Indication: INSOMNIA
     Route: 048
  2. COZAAR [Suspect]
     Active Substance: LOSARTAN POTASSIUM
     Indication: BLOOD PRESSURE MEASUREMENT
     Dosage: 50 MILLIGRAM
     Route: 048
  3. DILTIAZEM. [Concomitant]
     Active Substance: DILTIAZEM
     Indication: THROMBOSIS
     Dosage: 300 MILLIGRAM
  4. HYDRALAZINE [Concomitant]
     Active Substance: HYDRALAZINE HYDROCHLORIDE

REACTIONS (5)
  - Insomnia [Recovering/Resolving]
  - Coronavirus infection [Recovering/Resolving]
  - Mental disorder [Recovering/Resolving]
  - Anxiety [Recovering/Resolving]
  - Decreased interest [Recovering/Resolving]
